FAERS Safety Report 15391599 (Version 1)
Quarter: 2018Q3

REPORT INFORMATION
  Report Type: Spontaneous
  Country: US (occurrence: US)
  Receive Date: 20180917
  Receipt Date: 20180917
  Transmission Date: 20181010
  Serious: Yes (Other)
  Sender: FDA-Public Use
  Company Number: US-SA-2018SA257256

PATIENT
  Age: 14 Year
  Sex: Female
  Weight: 40.82 kg

DRUGS (9)
  1. CARVEDILOL. [Concomitant]
     Active Substance: CARVEDILOL
     Dosage: 1 DOSE BY MOUTH DAILY
     Route: 048
     Dates: start: 20170301
  2. HEPARIN [Concomitant]
     Active Substance: HEPARIN SODIUM
     Indication: FLUSHING
     Dosage: 100UN/ML AS DIRECTED
     Route: 042
     Dates: start: 20180602
  3. NORMAL SALINE [Concomitant]
     Active Substance: SODIUM CHLORIDE
     Indication: FLUSHING
     Dosage: 0.9 % AS DIRECTED
     Route: 042
     Dates: start: 20180602
  4. STERILE WATER [Concomitant]
     Active Substance: WATER
     Dosage: I DOSE AS DIRECTED
     Route: 042
     Dates: start: 20180602
  5. LUMIZYME [Suspect]
     Active Substance: ALGLUCOSIDASE ALFA
     Indication: GLYCOGEN STORAGE DISORDER
  6. LUMIZYME [Suspect]
     Active Substance: ALGLUCOSIDASE ALFA
     Indication: GLYCOGEN STORAGE DISEASE TYPE II
     Dosage: 1500 MG, QOW
     Route: 041
  7. SODIUM CHLORIDE. [Concomitant]
     Active Substance: SODIUM CHLORIDE
     Indication: FLUSHING
     Dosage: 0.9 %,AAS DIRECTED
     Route: 042
     Dates: start: 20180602
  8. EPINEPHRINE. [Concomitant]
     Active Substance: EPINEPHRINE
     Indication: ANAPHYLACTIC REACTION
     Dosage: 0.3 MG, PRN
     Route: 030
     Dates: start: 20180602
  9. LISINOPRIL + HIDROCLOROTIAZIDA [Concomitant]
     Active Substance: HYDROCHLOROTHIAZIDE\LISINOPRIL
     Dosage: 1 DOSE BY MOUTH DAILY
     Route: 048
     Dates: start: 20170301

REACTIONS (4)
  - Peripheral swelling [Unknown]
  - Central venous catheterisation [Unknown]
  - Breast swelling [Unknown]
  - Nasopharyngitis [Unknown]
